FAERS Safety Report 8130196-X (Version None)
Quarter: 2012Q1

REPORT INFORMATION
  Report Type: 
  Country: None (occurrence: None)
  Receive Date: 20120210
  Receipt Date: 20120130
  Transmission Date: 20120608
  Serious: Yes (Hospitalization)
  Sender: FDA-Public Use
  Company Number: PHHY2012FR005174

PATIENT
  Sex: Male
  Weight: 78 kg

DRUGS (6)
  1. CORDARONE [Concomitant]
     Indication: ATRIAL FIBRILLATION
  2. SPIRIVA [Suspect]
     Dosage: 1 DF, DAILY
     Dates: start: 20110701
  3. ONBREZ [Suspect]
     Indication: CHRONIC OBSTRUCTIVE PULMONARY DISEASE
     Dosage: 1 DF, BID
  4. SEREVENT [Concomitant]
     Indication: CHRONIC OBSTRUCTIVE PULMONARY DISEASE
     Dosage: 25 UG, BID
     Dates: start: 20100101
  5. QVAR 40 [Concomitant]
     Dosage: 1 DF, BID
  6. ONBREZ [Suspect]
     Dosage: 150 UG, QD
     Dates: start: 20111213, end: 20120116

REACTIONS (5)
  - DYSPNOEA [None]
  - CARDIAC DISCOMFORT [None]
  - FEELING ABNORMAL [None]
  - ATRIAL FIBRILLATION [None]
  - MALAISE [None]
